FAERS Safety Report 4973455-1 (Version None)
Quarter: 2006Q2

REPORT INFORMATION
  Report Type: 
  Country: None (occurrence: None)
  Receive Date: 20060413
  Receipt Date: 20060413
  Transmission Date: 20061013
  Serious: Yes (Death, Hospitalization)
  Sender: FDA-Public Use
  Company Number: None

PATIENT
  Age: 53 Year
  Sex: Male
  Weight: 75 kg

DRUGS (3)
  1. TAXOTERE [Suspect]
     Indication: SQUAMOUS CELL CARCINOMA
     Dosage: TAXOTERE 142 MG Q 21 DAYS X 3 IV
     Route: 042
     Dates: start: 20060217, end: 20060331
  2. CISPLATIN [Suspect]
     Dosage: CISPLATIN 142 MG Q 21 DAYS X 3 IV
     Route: 042
  3. ERBITUX [Suspect]
     Dosage: CETUXIMAB 675 WEEKLY IV
     Route: 042

REACTIONS (5)
  - APNOEA [None]
  - DEHYDRATION [None]
  - PAIN [None]
  - RASH [None]
  - REFUSAL OF TREATMENT BY PATIENT [None]
